FAERS Safety Report 21104902 (Version 1)
Quarter: 2022Q3

REPORT INFORMATION
  Report Type: Spontaneous
  Country: US (occurrence: None)
  Receive Date: 20220719
  Receipt Date: 20220719
  Transmission Date: 20221026
  Serious: No
  Sender: FDA-Public Use
  Company Number: None

PATIENT
  Age: 80 Year
  Sex: Female
  Weight: 63.5 kg

DRUGS (2)
  1. RITUXAN [Suspect]
     Active Substance: RITUXIMAB
     Indication: Arthropathy
     Dosage: FREQUENCY : AS DIRECTED;?
     Route: 042
     Dates: start: 202203
  2. RITUXAN [Suspect]
     Active Substance: RITUXIMAB
     Indication: Musculoskeletal disorder

REACTIONS (1)
  - Hospitalisation [None]
